FAERS Safety Report 16778511 (Version 1)
Quarter: 2019Q3

REPORT INFORMATION
  Report Type: Spontaneous
  Country: US (occurrence: US)
  Receive Date: 20190906
  Receipt Date: 20190906
  Transmission Date: 20191005
  Serious: No
  Sender: FDA-Public Use
  Company Number: US-CELGENEUS-USA-20190810148

PATIENT
  Age: 77 Year
  Sex: Female

DRUGS (2)
  1. REVLIMID [Suspect]
     Active Substance: LENALIDOMIDE
     Indication: PLASMA CELL MYELOMA
     Dosage: 25 MILLIGRAM
     Route: 048
     Dates: start: 20190618, end: 20190815
  2. REVLIMID [Suspect]
     Active Substance: LENALIDOMIDE
     Dosage: 15 MILLIGRAM
     Route: 048
     Dates: start: 201908

REACTIONS (7)
  - Dizziness [Recovered/Resolved]
  - Platelet count decreased [Recovered/Resolved]
  - Headache [Recovered/Resolved]
  - Feeling abnormal [Recovered/Resolved]
  - Constipation [Recovered/Resolved]
  - Hypotension [Recovered/Resolved]
  - Nausea [Recovered/Resolved]

NARRATIVE: CASE EVENT DATE: 20190718
